FAERS Safety Report 8194946-9 (Version None)
Quarter: 2012Q1

REPORT INFORMATION
  Report Type: 
  Country: None (occurrence: None)
  Receive Date: 20120308
  Receipt Date: 20110720
  Transmission Date: 20120608
  Serious: No
  Sender: FDA-Public Use
  Company Number: US-GLAXOSMITHKLINE-A0937466A

PATIENT
  Age: 80 Year
  Sex: Female

DRUGS (3)
  1. NICOTINE [Suspect]
     Indication: EX-TOBACCO USER
     Route: 002
     Dates: start: 20080101
  2. NICOTINE POLACRILEX [Suspect]
     Indication: EX-TOBACCO USER
     Route: 002
     Dates: start: 20080101
  3. NICORETTE [Suspect]
     Indication: EX-TOBACCO USER
     Route: 002
     Dates: start: 20080101

REACTIONS (4)
  - DRUG ADMINISTRATION ERROR [None]
  - TOOTH DISCOLOURATION [None]
  - TONGUE COATED [None]
  - NICOTINE DEPENDENCE [None]
